FAERS Safety Report 9453610 (Version 1)
Quarter: 2013Q1

REPORT INFORMATION
  Report Type: Not Available
  Country: US (occurrence: US)
  Receive Date: 20120321
  Receipt Date: 20120321
  Transmission Date: 20140127
  Serious: Yes (Other)
  Sender: FDA-Public Use
  Company Number: US-LUNDBECK-DKLU1074021

PATIENT
  Age: 43 None
  Sex: Female

DRUGS (3)
  1. SABRIL     (TABLET) [Suspect]
     Indication: COMPLEX PARTIAL SEIZURES
     Route: 048
     Dates: start: 20110818, end: 201110
  2. SABRIL     (TABLET) [Suspect]
     Route: 048
     Dates: start: 20110818, end: 201110
  3. SABRIL     (TABLET) [Suspect]
     Route: 048
     Dates: start: 201110

REACTIONS (1)
  - Convulsion [Not Recovered/Not Resolved]
